FAERS Safety Report 15154092 (Version 1)
Quarter: 2018Q3

REPORT INFORMATION
  Report Type: Spontaneous
  Country: SA (occurrence: SA)
  Receive Date: 20180717
  Receipt Date: 20180717
  Transmission Date: 20181010
  Serious: Yes (Other)
  Sender: FDA-Public Use
  Company Number: SA-SA-2018SA181787

PATIENT
  Age: 42 Year
  Sex: Female

DRUGS (1)
  1. ENOXAPARIN SODIUM. [Suspect]
     Active Substance: ENOXAPARIN SODIUM
     Indication: DEEP VEIN THROMBOSIS
     Dosage: 1.5 MG/KG, QD

REACTIONS (6)
  - Drug ineffective [Unknown]
  - Back pain [Unknown]
  - Hypoaesthesia [Unknown]
  - Anal incontinence [Unknown]
  - Muscular weakness [Unknown]
  - Urinary retention [Unknown]
